FAERS Safety Report 22000408 (Version 1)
Quarter: 2023Q1

REPORT INFORMATION
  Report Type: Spontaneous
  Country: US (occurrence: None)
  Receive Date: 20230215
  Receipt Date: 20230215
  Transmission Date: 20230417
  Serious: Yes (Disabling)
  Sender: FDA-Public Use
  Company Number: None

PATIENT
  Age: 33 Year
  Sex: Female
  Weight: 75.6 kg

DRUGS (1)
  1. EFFEXOR [Suspect]
     Active Substance: VENLAFAXINE HYDROCHLORIDE
     Indication: Generalised anxiety disorder

REACTIONS (14)
  - Withdrawal syndrome [None]
  - Dizziness [None]
  - Confusional state [None]
  - Balance disorder [None]
  - Vomiting [None]
  - Electric shock sensation [None]
  - Tremor [None]
  - Paraesthesia [None]
  - Body temperature fluctuation [None]
  - Feeling abnormal [None]
  - Impaired work ability [None]
  - Impaired driving ability [None]
  - Depression [None]
  - Alcohol withdrawal syndrome [None]

NARRATIVE: CASE EVENT DATE: 20230129
